FAERS Safety Report 8816451 (Version 1)
Quarter: 2012Q4

REPORT INFORMATION
  Report Type: Spontaneous
  Country: US (occurrence: None)
  Receive Date: 20120928
  Receipt Date: 20120928
  Transmission Date: 20130627
  Serious: Yes (Other)
  Sender: FDA-Public Use
  Company Number: None

PATIENT
  Age: 58 Year
  Sex: Female

DRUGS (14)
  1. HUMIRA [Suspect]
     Indication: CROHN^S DISEASE
     Dosage: 40mg every other week sq
     Route: 058
  2. ZOLOFT [Concomitant]
  3. PROAIR [Concomitant]
  4. FLONASE [Concomitant]
  5. ALLEGRA [Concomitant]
  6. PREMARIN [Concomitant]
  7. LEVOTHYROXINE [Concomitant]
  8. PRAMIPEXOLE [Concomitant]
  9. DICYCLOMINE [Concomitant]
  10. OMEPRAZOLE [Concomitant]
  11. PENTASA [Concomitant]
  12. BUSPAR [Concomitant]
  13. MVI [Concomitant]
  14. VIVELLE [Concomitant]

REACTIONS (1)
  - Suicidal ideation [None]
